FAERS Safety Report 11612997 (Version 1)
Quarter: 2015Q4

REPORT INFORMATION
  Report Type: Spontaneous
  Country: US (occurrence: US)
  Receive Date: 20151008
  Receipt Date: 20151008
  Transmission Date: 20160304
  Serious: No
  Sender: FDA-Public Use
  Company Number: US-JNJFOC-20150900921

PATIENT
  Sex: Female
  Weight: 78.93 kg

DRUGS (8)
  1. NOVOLOG [Concomitant]
     Active Substance: INSULIN ASPART
     Indication: DIABETES MELLITUS
     Dosage: MORNING (4 UNITS), LUNCH (4 UNITS), SUPPER (6 UNITS), IF NEEDED BEFORE BEDTIME ALSO.
     Dates: start: 1990
  2. BRIMONIDINE [Concomitant]
     Active Substance: BRIMONIDINE TARTRATE
     Indication: GLAUCOMA
     Dosage: ONE DROP IN EACH EYE, TWICE A DAY. STRENGTH IS 0.15%.
  3. INVOKANA [Suspect]
     Active Substance: CANAGLIFLOZIN
     Indication: TYPE 1 DIABETES MELLITUS
     Route: 048
     Dates: start: 2015, end: 201508
  4. NADOLOL. [Concomitant]
     Active Substance: NADOLOL
     Indication: HYPERTENSION
     Dosage: 40 MG AT BREAKFAST, 160 MG AT BEDTIME. STRENGTH IS 80 MG.
  5. LATANOPROST. [Concomitant]
     Active Substance: LATANOPROST
     Indication: GLAUCOMA
     Dosage: ^ONE DROP IN EACH EYE, TWICE A DAY/ 0.005%/ ONCE A DAY^
  6. LANTUS [Concomitant]
     Active Substance: INSULIN GLARGINE
     Indication: DIABETES MELLITUS
     Dosage: 12 UNITS IN MORNING AND 12 UNITS IN SUPPER TIME.
     Dates: start: 1990
  7. SYNTHROID [Concomitant]
     Active Substance: LEVOTHYROXINE SODIUM
     Indication: THYROID DISORDER
  8. LOSARTAN. [Concomitant]
     Active Substance: LOSARTAN
     Indication: HYPERTENSION

REACTIONS (3)
  - Vulvovaginal mycotic infection [Recovered/Resolved]
  - Dysuria [Recovered/Resolved]
  - Product use issue [Unknown]

NARRATIVE: CASE EVENT DATE: 2015
